FAERS Safety Report 4786525-8 (Version None)
Quarter: 2005Q3

REPORT INFORMATION
  Report Type: 
  Country: None (occurrence: None)
  Receive Date: 20050927
  Receipt Date: 20050715
  Transmission Date: 20060218
  Serious: No
  Sender: FDA-Public Use
  Company Number: USA0507102941

PATIENT
  Age: 42 Year
  Sex: Female

DRUGS (4)
  1. STRATTERA [Suspect]
     Indication: ATTENTION DEFICIT/HYPERACTIVITY DISORDER
     Dosage: 80 MG
     Dates: start: 20050401
  2. BUSPAR [Concomitant]
  3. SEROQUEL [Concomitant]
  4. EFFEXOR [Concomitant]

REACTIONS (1)
  - DYSPHEMIA [None]
